FAERS Safety Report 23565008 (Version 1)
Quarter: 2024Q1

REPORT INFORMATION
  Report Type: Spontaneous
  Country: US (occurrence: US)
  Receive Date: 20240226
  Receipt Date: 20240226
  Transmission Date: 20240410
  Serious: No
  Sender: FDA-Public Use
  Company Number: US-BRISTOL-MYERS SQUIBB COMPANY-2024-029989

PATIENT
  Age: 63 Year
  Sex: Female
  Weight: 132.9 kg

DRUGS (1)
  1. POMALYST [Suspect]
     Active Substance: POMALIDOMIDE
     Indication: Plasma cell myeloma
     Dosage: 3WKSON,1WKOFF
     Route: 048

REACTIONS (5)
  - Eye swelling [Unknown]
  - Rash [Unknown]
  - Hypoaesthesia oral [Unknown]
  - Throat tightness [Unknown]
  - Fluid retention [Unknown]
